FAERS Safety Report 4368633-9 (Version None)
Quarter: 2004Q2

REPORT INFORMATION
  Report Type: 
  Country: None (occurrence: None)
  Receive Date: 20040602
  Receipt Date: 20040524
  Transmission Date: 20050107
  Serious: Yes (Other)
  Sender: FDA-Public Use
  Company Number: JP-MERCK-0405USA02035

PATIENT
  Age: 38 Year
  Sex: Male

DRUGS (9)
  1. UNASYN [Concomitant]
     Route: 065
     Dates: start: 20040518, end: 20040522
  2. PRIMAXIN [Concomitant]
     Route: 042
     Dates: start: 20040522, end: 20040522
  3. CLINDAMYCIN HCL [Concomitant]
     Route: 042
     Dates: start: 20040518, end: 20040522
  4. PEPCID [Suspect]
     Route: 051
     Dates: start: 20040520, end: 20040522
  5. PERDIPINE [Concomitant]
     Route: 042
     Dates: start: 20040518, end: 20040522
  6. DIPRIVAN [Concomitant]
     Route: 042
     Dates: start: 20040520, end: 20040520
  7. ZANTAC [Concomitant]
     Route: 065
     Dates: end: 20040519
  8. ZANTAC [Concomitant]
     Route: 065
     Dates: start: 20040523
  9. MUSCULAX [Concomitant]
     Route: 042
     Dates: start: 20040520, end: 20040520

REACTIONS (1)
  - BLOOD CREATINE PHOSPHOKINASE INCREASED [None]
